FAERS Safety Report 21513703 (Version 14)
Quarter: 2023Q4

REPORT INFORMATION
  Report Type: Report from Study
  Country: CN (occurrence: CN)
  Receive Date: 20221027
  Receipt Date: 20231027
  Transmission Date: 20240109
  Serious: Yes (Hospitalization)
  Sender: FDA-Public Use
  Company Number: CN-JNJFOC-20221042237

PATIENT
  Age: 63 Year
  Sex: Male
  Weight: 62 kg

DRUGS (14)
  1. DARATUMUMAB [Suspect]
     Active Substance: DARATUMUMAB
     Indication: Plasma cell myeloma
     Dosage: ALSO REPORTED AS 15 ML,?MOST RECENT DOSE ALSO REPORTED AS 11-OCT-2022, 03-NOV-2022, 17-NOV-2022
     Route: 058
     Dates: start: 20221004, end: 20221130
  2. ACYCLOVIR [Concomitant]
     Active Substance: ACYCLOVIR
     Indication: Antiviral prophylaxis
     Route: 048
     Dates: start: 20221004, end: 20221017
  3. ACYCLOVIR [Concomitant]
     Active Substance: ACYCLOVIR
     Route: 048
     Dates: start: 20200703
  4. VITAMIN B1 [Concomitant]
     Active Substance: THIAMINE HYDROCHLORIDE
     Indication: Prophylaxis
     Route: 048
     Dates: start: 20221004, end: 20221017
  5. VITAMIN B1 [Concomitant]
     Active Substance: THIAMINE HYDROCHLORIDE
     Route: 048
     Dates: start: 20200703
  6. COBALTOMIN [Concomitant]
     Indication: Prophylaxis
     Route: 048
     Dates: start: 20221010, end: 20221017
  7. GRANULOCYTE COLONY STIMULATING FACTOR;MITUMPROTIMUT-T [Concomitant]
     Indication: Neutrophil count decreased
     Route: 058
     Dates: start: 20220903, end: 20220903
  8. POTASSIUM CITRATE [Concomitant]
     Active Substance: POTASSIUM CITRATE
     Indication: Nutritional supplementation
     Route: 048
     Dates: start: 20220831, end: 20220906
  9. POTASSIUM CITRATE [Concomitant]
     Active Substance: POTASSIUM CITRATE
     Indication: Mineral supplementation
     Dosage: 3
     Route: 048
     Dates: start: 20221025, end: 20221025
  10. METHYLCOBALAMIN [Concomitant]
     Active Substance: METHYLCOBALAMIN
     Indication: Prophylaxis
     Route: 048
     Dates: start: 20221004, end: 20221017
  11. METHYLCOBALAMIN [Concomitant]
     Active Substance: METHYLCOBALAMIN
     Route: 048
     Dates: start: 20200703
  12. ZOLEDRONIC ACID [Concomitant]
     Active Substance: ZOLEDRONIC ACID
     Indication: Prophylaxis
     Route: 042
     Dates: start: 20221110, end: 20221110
  13. OMEPRAZOLE [Concomitant]
     Active Substance: OMEPRAZOLE
     Indication: Gastrointestinal disorder therapy
     Dosage: 20
     Route: 048
     Dates: start: 20221103, end: 20221103
  14. THEOPHYLLINE [Concomitant]
     Active Substance: THEOPHYLLINE
     Indication: Pneumonia
     Route: 048
     Dates: start: 20221023, end: 20221026

REACTIONS (2)
  - Upper respiratory tract infection [Recovered/Resolved]
  - Pneumonia [Recovering/Resolving]

NARRATIVE: CASE EVENT DATE: 20221018
